FAERS Safety Report 9228297 (Version 2)
Quarter: 2013Q2

REPORT INFORMATION
  Report Type: Spontaneous
  Country: US (occurrence: US)
  Receive Date: 20130412
  Receipt Date: 20130507
  Transmission Date: 20140414
  Serious: Yes (Hospitalization)
  Sender: FDA-Public Use
  Company Number: US-GILEAD-2013-0073312

PATIENT
  Sex: Female

DRUGS (7)
  1. LETAIRIS [Suspect]
     Indication: PULMONARY HYPERTENSION
     Dosage: 10 MG, QD
     Dates: start: 20130207
  2. LETAIRIS [Suspect]
     Dosage: DOSE REDUCED
  3. ADCIRCA [Concomitant]
     Dosage: 20 MG, QD
     Dates: start: 20130202
  4. FLONASE [Concomitant]
  5. FOLIC ACID [Concomitant]
  6. LASIX                              /00032601/ [Concomitant]
     Dosage: 20 MG, UNK
  7. ASPIRIN [Concomitant]
     Dosage: 81 MG, UNK

REACTIONS (2)
  - Dyspnoea [Recovered/Resolved]
  - Fluid retention [Recovered/Resolved]
